FAERS Safety Report 24922185 (Version 2)
Quarter: 2025Q1

REPORT INFORMATION
  Report Type: Spontaneous
  Country: US (occurrence: US)
  Receive Date: 20250204
  Receipt Date: 20250311
  Transmission Date: 20250409
  Serious: No
  Sender: TOLMAR
  Company Number: US-TOLMAR, INC.-25US055481

PATIENT
  Sex: Male

DRUGS (1)
  1. ELIGARD [Suspect]
     Active Substance: LEUPROLIDE ACETATE
     Indication: Prostate cancer
     Dosage: 45 MILLIGRAM, Q 6 MONTH
     Route: 058

REACTIONS (4)
  - Intercepted product preparation error [Unknown]
  - Device leakage [Unknown]
  - Device occlusion [Unknown]
  - Syringe issue [Unknown]
